FAERS Safety Report 25210403 (Version 1)
Quarter: 2025Q2

REPORT INFORMATION
  Report Type: Spontaneous
  Country: US (occurrence: US)
  Receive Date: 20250417
  Receipt Date: 20250417
  Transmission Date: 20250717
  Serious: Yes (Other)
  Sender: FRESENIUS KABI COMPOUNDING - No Location Specified
  Company Number: US-Fresenius Kabi Compounding, LLC-2175103

PATIENT
  Age: 25 Year
  Sex: Female
  Weight: 90.5 kg

DRUGS (1)
  1. OXYTOCIN [Suspect]
     Active Substance: OXYTOCIN
     Dates: start: 20250407, end: 20250407

REACTIONS (1)
  - Drug ineffective [Recovered/Resolved]
